FAERS Safety Report 24342655 (Version 1)
Quarter: 2024Q3

REPORT INFORMATION
  Report Type: Spontaneous
  Country: CH (occurrence: CH)
  Receive Date: 20240920
  Receipt Date: 20240920
  Transmission Date: 20241017
  Serious: Yes (Other)
  Sender: ACCORD
  Company Number: CH-MLMSERVICE-20240902-PI178318-00255-1

PATIENT
  Age: 8 Decade
  Sex: Male

DRUGS (2)
  1. PACLITAXEL [Suspect]
     Active Substance: PACLITAXEL
     Indication: Adenocarcinoma gastric
  2. RAMUCIRUMAB [Concomitant]
     Active Substance: RAMUCIRUMAB
     Indication: Adenocarcinoma gastric

REACTIONS (2)
  - Polyneuropathy [Unknown]
  - Off label use [Unknown]
